FAERS Safety Report 7582871-3 (Version None)
Quarter: 2011Q2

REPORT INFORMATION
  Report Type: 
  Country: None (occurrence: None)
  Receive Date: 20110630
  Receipt Date: 20110628
  Transmission Date: 20111010
  Serious: Yes (Other)
  Sender: FDA-Public Use
  Company Number: AU-PFIZER INC-2011142988

PATIENT
  Age: 28 Year
  Sex: Male

DRUGS (6)
  1. LYRICA [Suspect]
     Dosage: 150 MG, 2X/DAY
  2. DITROPAN [Concomitant]
     Dosage: UNK
  3. VALIUM [Concomitant]
     Dosage: UNK
  4. LYRICA [Suspect]
     Dosage: 150-300 MG
  5. BACLOFEN [Concomitant]
     Dosage: UNK
  6. LYRICA [Suspect]
     Indication: NEURALGIA
     Dosage: 75 MG, 2X/DAY
     Dates: start: 20110101

REACTIONS (6)
  - HEADACHE [None]
  - DRUG DEPENDENCE [None]
  - ALOPECIA [None]
  - PERSONALITY CHANGE [None]
  - PSYCHOTIC BEHAVIOUR [None]
  - PRURITUS [None]
